FAERS Safety Report 7234907-7 (Version None)
Quarter: 2011Q1

REPORT INFORMATION
  Report Type: 
  Country: None (occurrence: None)
  Receive Date: 20110120
  Receipt Date: 20110118
  Transmission Date: 20110831
  Serious: Yes (Other)
  Sender: FDA-Public Use
  Company Number: US-AMGEN-USASP2010005097

PATIENT

DRUGS (7)
  1. ACTOS [Concomitant]
  2. NOVOLIN 70/30 [Concomitant]
  3. POTASSIUM [Concomitant]
  4. NPLATE [Suspect]
     Indication: IDIOPATHIC THROMBOCYTOPENIC PURPURA
     Dosage: 685 A?G, QWK
     Dates: start: 20100901
  5. LASIX [Concomitant]
  6. NEURONTIN [Concomitant]
  7. NOVOLIN R [Concomitant]

REACTIONS (8)
  - DEPRESSION [None]
  - BLOOD BLISTER [None]
  - HAEMOPTYSIS [None]
  - EPISTAXIS [None]
  - PLATELET COUNT DECREASED [None]
  - RASH GENERALISED [None]
  - BLOOD GLUCOSE INCREASED [None]
  - RASH [None]
